FAERS Safety Report 13899328 (Version 5)
Quarter: 2021Q1

REPORT INFORMATION
  Report Type: Spontaneous
  Country: US (occurrence: US)
  Receive Date: 20170823
  Receipt Date: 20210129
  Transmission Date: 20210419
  Serious: Yes (Hospitalization)
  Sender: FDA-Public Use
  Company Number: US-JAZZ-2017-US-008119

PATIENT
  Sex: Female

DRUGS (50)
  1. XYREM [Suspect]
     Active Substance: SODIUM OXYBATE
     Dosage: 4.5G, BID
     Route: 048
     Dates: start: 201507
  2. METAXALONE. [Concomitant]
     Active Substance: METAXALONE
  3. FENTANYL. [Concomitant]
     Active Substance: FENTANYL
  4. BEPREVE [Concomitant]
     Active Substance: BEPOTASTINE BESILATE
  5. HORIZANT [Concomitant]
     Active Substance: GABAPENTIN ENACARBIL
  6. XOLAIR [Concomitant]
     Active Substance: OMALIZUMAB
  7. DEXILANT [Concomitant]
     Active Substance: DEXLANSOPRAZOLE
  8. FLUCONAZOLE. [Concomitant]
     Active Substance: FLUCONAZOLE
  9. HYDROCHLOROTHIAZIDE. [Concomitant]
     Active Substance: HYDROCHLOROTHIAZIDE
  10. HYDROXYZINE HCL [Concomitant]
     Active Substance: HYDROXYZINE HYDROCHLORIDE
  11. BOTOX [Concomitant]
     Active Substance: ONABOTULINUMTOXINA
  12. DEXAMETHASONE. [Concomitant]
     Active Substance: DEXAMETHASONE
  13. FERROUS SULFATE. [Concomitant]
     Active Substance: FERROUS SULFATE
  14. CRESTOR [Concomitant]
     Active Substance: ROSUVASTATIN CALCIUM
  15. DONNATAL [Concomitant]
     Active Substance: ATROPINE SULFATE\HYOSCYAMINE SULFATE\PHENOBARBITAL\SCOPOLAMINE HYDROBROMIDE
  16. XYREM [Suspect]
     Active Substance: SODIUM OXYBATE
     Indication: NARCOLEPSY
     Dosage: 2.25G, BID
     Route: 048
     Dates: start: 201506, end: 201507
  17. DILAUDID [Concomitant]
     Active Substance: HYDROMORPHONE HYDROCHLORIDE
  18. VIIBRYD [Concomitant]
     Active Substance: VILAZODONE HYDROCHLORIDE
  19. CELEBREX [Concomitant]
     Active Substance: CELECOXIB
  20. PREDNISONE. [Concomitant]
     Active Substance: PREDNISONE
  21. METHOCARBAMOL. [Concomitant]
     Active Substance: METHOCARBAMOL
  22. KETOTIFEN FUMARATE. [Concomitant]
     Active Substance: KETOTIFEN FUMARATE
  23. DOXYCYCLINE HYCLATE. [Concomitant]
     Active Substance: DOXYCYCLINE HYCLATE
  24. UBIDECARENONE. [Concomitant]
     Active Substance: UBIDECARENONE
  25. FISH OIL [Concomitant]
     Active Substance: FISH OIL
  26. VAGIFEM [Concomitant]
     Active Substance: ESTRADIOL
  27. NORCO [Concomitant]
     Active Substance: ACETAMINOPHEN\HYDROCODONE BITARTRATE
  28. ERGOCALCIFEROL. [Concomitant]
     Active Substance: ERGOCALCIFEROL
  29. XYREM [Suspect]
     Active Substance: SODIUM OXYBATE
     Indication: CATAPLEXY
     Dosage: DOSE ADJUSTMENT
     Route: 048
     Dates: start: 201507, end: 201507
  30. METFORMIN HCL [Concomitant]
     Active Substance: METFORMIN HYDROCHLORIDE
  31. BUSPIRONE HCL [Concomitant]
     Active Substance: BUSPIRONE HYDROCHLORIDE
  32. FIORICET [Concomitant]
     Active Substance: ACETAMINOPHEN\BUTALBITAL\CAFFEINE
  33. GABAPENTIN. [Concomitant]
     Active Substance: GABAPENTIN
  34. LEVOCETIRIZINE [Concomitant]
     Active Substance: LEVOCETIRIZINE
  35. PARACETAMOL [Suspect]
     Active Substance: ACETAMINOPHEN
     Indication: PRODUCT USED FOR UNKNOWN INDICATION
  36. XOPENEX HFA [Concomitant]
     Active Substance: LEVALBUTEROL TARTRATE
  37. ADDERALL [Concomitant]
     Active Substance: AMPHETAMINE ASPARTATE\AMPHETAMINE SULFATE\DEXTROAMPHETAMINE SACCHARATE\DEXTROAMPHETAMINE SULFATE
  38. CYCLOBENZAPRINE. [Concomitant]
     Active Substance: CYCLOBENZAPRINE
  39. ESOMEPRAZOLE MAGNESIUM. [Concomitant]
     Active Substance: ESOMEPRAZOLE MAGNESIUM
  40. RITALIN [Concomitant]
     Active Substance: METHYLPHENIDATE HYDROCHLORIDE
  41. VIVELLE?DOT [Concomitant]
     Active Substance: ESTRADIOL
  42. NEUPRO [Concomitant]
     Active Substance: ROTIGOTINE
  43. SINGULAIR [Concomitant]
     Active Substance: MONTELUKAST SODIUM
  44. MAGNESIUM GLUCEPTATE [Concomitant]
     Active Substance: MAGNESIUM GLUCEPTATE
  45. CLONAZEPAM. [Concomitant]
     Active Substance: CLONAZEPAM
  46. DULERA [Concomitant]
     Active Substance: FORMOTEROL FUMARATE DIHYDRATE\MOMETASONE FUROATE
  47. NASONEX [Concomitant]
     Active Substance: MOMETASONE FUROATE
  48. MODAFINIL. [Concomitant]
     Active Substance: MODAFINIL
  49. SPIRONOLACTONE. [Concomitant]
     Active Substance: SPIRONOLACTONE
  50. VENTOLIN HFA [Concomitant]
     Active Substance: ALBUTEROL SULFATE

REACTIONS (2)
  - Medication overuse headache [Unknown]
  - Migraine [Unknown]
